FAERS Safety Report 12310550 (Version 2)
Quarter: 2016Q2

REPORT INFORMATION
  Report Type: Spontaneous
  Country: JP (occurrence: JP)
  Receive Date: 20160427
  Receipt Date: 20160510
  Transmission Date: 20160815
  Serious: Yes (Other)
  Sender: FDA-Public Use
  Company Number: JP-JNJFOC-20160422679

PATIENT

DRUGS (24)
  1. TIAPRIDE [Suspect]
     Active Substance: TIAPRIDE
     Indication: PANIC DISORDER
     Dosage: NORMAL DOSES
     Route: 048
  2. ALPRAZOLAM. [Suspect]
     Active Substance: ALPRAZOLAM
     Indication: RESTLESSNESS
     Dosage: NORMAL DOSES
     Route: 048
  3. HALOPERIDOL. [Suspect]
     Active Substance: HALOPERIDOL
     Indication: RESTLESSNESS
     Dosage: NORMAL DOSES
     Route: 048
  4. TIAPRIDE [Suspect]
     Active Substance: TIAPRIDE
     Indication: INSOMNIA
     Dosage: NORMAL DOSES
     Route: 048
  5. DIAZEPAM. [Suspect]
     Active Substance: DIAZEPAM
     Indication: INSOMNIA
     Dosage: NORMAL DOSES
     Route: 048
  6. RISPERDAL [Suspect]
     Active Substance: RISPERIDONE
     Indication: PANIC DISORDER
     Dosage: NORMAL DOSES
     Route: 048
  7. RISPERDAL [Suspect]
     Active Substance: RISPERIDONE
     Indication: INSOMNIA
     Dosage: NORMAL DOSES
     Route: 048
  8. QUETIAPINE. [Suspect]
     Active Substance: QUETIAPINE
     Indication: INSOMNIA
     Dosage: NORMAL DOSES
     Route: 048
  9. QUETIAPINE. [Suspect]
     Active Substance: QUETIAPINE
     Indication: RESTLESSNESS
     Dosage: NORMAL DOSES
     Route: 048
  10. QUETIAPINE. [Suspect]
     Active Substance: QUETIAPINE
     Indication: AUTISM
     Dosage: NORMAL DOSES
     Route: 048
  11. TIAPRIDE [Suspect]
     Active Substance: TIAPRIDE
     Indication: RESTLESSNESS
     Dosage: NORMAL DOSES
     Route: 048
  12. DIAZEPAM. [Suspect]
     Active Substance: DIAZEPAM
     Indication: RESTLESSNESS
     Dosage: NORMAL DOSES
     Route: 048
  13. DIAZEPAM. [Suspect]
     Active Substance: DIAZEPAM
     Indication: AUTISM
     Dosage: NORMAL DOSES
     Route: 048
  14. RISPERDAL [Suspect]
     Active Substance: RISPERIDONE
     Indication: RESTLESSNESS
     Dosage: NORMAL DOSES
     Route: 048
  15. HALOPERIDOL. [Suspect]
     Active Substance: HALOPERIDOL
     Indication: PANIC DISORDER
     Dosage: NORMAL DOSES
     Route: 048
  16. QUETIAPINE. [Suspect]
     Active Substance: QUETIAPINE
     Indication: PANIC DISORDER
     Dosage: NORMAL DOSES
     Route: 048
  17. TIAPRIDE [Suspect]
     Active Substance: TIAPRIDE
     Indication: AUTISM
     Dosage: NORMAL DOSES
     Route: 048
  18. HALOPERIDOL. [Suspect]
     Active Substance: HALOPERIDOL
     Indication: INSOMNIA
     Dosage: NORMAL DOSES
     Route: 048
  19. ALPRAZOLAM. [Suspect]
     Active Substance: ALPRAZOLAM
     Indication: PANIC DISORDER
     Dosage: NORMAL DOSES
     Route: 048
  20. DIAZEPAM. [Suspect]
     Active Substance: DIAZEPAM
     Indication: PANIC DISORDER
     Dosage: NORMAL DOSES
     Route: 048
  21. RISPERDAL [Suspect]
     Active Substance: RISPERIDONE
     Indication: AUTISM
     Dosage: NORMAL DOSES
     Route: 048
  22. HALOPERIDOL. [Suspect]
     Active Substance: HALOPERIDOL
     Indication: AUTISM
     Dosage: NORMAL DOSES
     Route: 048
  23. ALPRAZOLAM. [Suspect]
     Active Substance: ALPRAZOLAM
     Indication: INSOMNIA
     Dosage: NORMAL DOSES
     Route: 048
  24. ALPRAZOLAM. [Suspect]
     Active Substance: ALPRAZOLAM
     Indication: AUTISM
     Dosage: NORMAL DOSES
     Route: 048

REACTIONS (2)
  - Extrapyramidal disorder [Unknown]
  - Dysphagia [Not Recovered/Not Resolved]
